FAERS Safety Report 5471307-4 (Version None)
Quarter: 2007Q3

REPORT INFORMATION
  Report Type: 
  Country: None (occurrence: None)
  Receive Date: 20070928
  Receipt Date: 20070529
  Transmission Date: 20080115
  Serious: Yes (Hospitalization)
  Sender: FDA-Public Use
  Company Number: JP-SANOFI-SYNTHELABO-F01200700500

PATIENT
  Sex: Male
  Weight: 46 kg

DRUGS (5)
  1. P MAGEN [Concomitant]
  2. IRSOGLADINE MALEATE [Concomitant]
  3. ARICEPT [Concomitant]
  4. HYPEN [Concomitant]
  5. CLOPIDOGREL [Suspect]
     Indication: LACUNAR INFARCTION
     Route: 048
     Dates: start: 20061013, end: 20070412

REACTIONS (2)
  - GASTRIC CANCER [None]
  - GASTRIC HAEMORRHAGE [None]
